FAERS Safety Report 8992273 (Version 1)
Quarter: 2013Q1

REPORT INFORMATION
  Report Type: Spontaneous
  Country: CO (occurrence: CO)
  Receive Date: 20130101
  Receipt Date: 20130101
  Transmission Date: 20140127
  Serious: Yes (Hospitalization)
  Sender: FDA-Public Use
  Company Number: CO-AMGEN-COLSP2012083348

PATIENT
  Age: 49 Year
  Sex: Female

DRUGS (11)
  1. ENBREL [Suspect]
     Indication: ARTHRITIS
     Dosage: 50 MG, WEEKLY
     Route: 058
     Dates: start: 201211
  2. ENBREL [Suspect]
     Indication: SPONDYLITIS
  3. CELECOXIB [Suspect]
     Indication: SWELLING
     Dosage: 400 MG, 1X/DAY
     Dates: start: 201106
  4. MEDROL                             /00049601/ [Suspect]
     Indication: JOINT SWELLING
     Dosage: 4 MG, 1X/DAY
     Dates: start: 201206
  5. CAPTOPRIL [Concomitant]
     Indication: HYPERTENSION
     Dosage: 50 MG, 3X/DAY
     Route: 048
     Dates: start: 2007
  6. VERAPAMIL [Concomitant]
     Indication: HYPERTENSION
     Dosage: 80 MG, 3X/DAY
     Route: 048
     Dates: start: 2007
  7. VITAMIN D /00107901/ [Concomitant]
     Indication: PROPHYLAXIS
     Dosage: 500 IU, 1X/DAY
     Dates: start: 201106
  8. THYROXIN [Concomitant]
     Indication: HYPOTHYROIDISM
     Dosage: 200 MG, 1X/DAY
  9. FLUOXETINE [Concomitant]
     Indication: STRESS
     Dosage: 40 MG, 2X/DAY
     Dates: start: 201112
  10. ACETAMINOPHEN W/HYDROCODONE BITARTRATE [Concomitant]
     Indication: ARTHRALGIA
     Dosage: 500 MG, 2X/DAY
     Dates: start: 201208
  11. GABAPENTIN [Concomitant]
     Indication: INSOMNIA
     Dosage: 400 MG, 1X/DAY
     Dates: start: 201208

REACTIONS (6)
  - Back pain [Unknown]
  - Influenza [Recovering/Resolving]
  - Arthralgia [Unknown]
  - Headache [Unknown]
  - Tuberculin test positive [Unknown]
  - Drug ineffective [Unknown]
